FAERS Safety Report 8922092 (Version 5)
Quarter: 2013Q3

REPORT INFORMATION
  Report Type: Spontaneous
  Country: US (occurrence: US)
  Receive Date: 20121123
  Receipt Date: 20130830
  Transmission Date: 20140515
  Serious: Yes (Hospitalization, Disabling, Other)
  Sender: FDA-Public Use
  Company Number: US-JNJFOC-20121109141

PATIENT
  Sex: Male

DRUGS (3)
  1. RISPERDAL [Suspect]
     Indication: DEPRESSION
     Route: 048
     Dates: start: 1997, end: 2005
  2. RISPERDAL [Suspect]
     Indication: BIPOLAR DISORDER
     Route: 048
     Dates: start: 1997, end: 2005
  3. SEROQUEL [Concomitant]
     Indication: BIPOLAR DISORDER
     Route: 065

REACTIONS (6)
  - Blount^s disease [Not Recovered/Not Resolved]
  - Treatment noncompliance [Unknown]
  - Knee deformity [Not Recovered/Not Resolved]
  - Obesity [Not Recovered/Not Resolved]
  - Gynaecomastia [Unknown]
  - Skin lesion [Unknown]
